FAERS Safety Report 6301595-3 (Version None)
Quarter: 2009Q3

REPORT INFORMATION
  Report Type: 
  Country: None (occurrence: None)
  Receive Date: 20090807
  Receipt Date: 20090805
  Transmission Date: 20100115
  Serious: Yes (Death, Other)
  Sender: FDA-Public Use
  Company Number: JP-ELI_LILLY_AND_COMPANY-JP_030500885

PATIENT
  Sex: Male
  Weight: 47.1 kg

DRUGS (5)
  1. GEMZAR [Suspect]
     Indication: PANCREATIC CARCINOMA STAGE IV
     Dosage: 1400 MG, OTHER
     Route: 042
     Dates: start: 20020108, end: 20021008
  2. GASTER [Concomitant]
     Dosage: UNK, UNKNOWN
  3. LOXONIN [Concomitant]
     Dosage: 3 UNK, DAILY (1/D)
     Route: 048
     Dates: start: 20011201
  4. SELBEX [Concomitant]
     Dosage: UNK, UNKNOWN
  5. LASIX [Concomitant]
     Dosage: 40 MG, DAILY (1/D)
     Route: 048
     Dates: start: 20020917

REACTIONS (6)
  - ASCITES [None]
  - GASTROINTESTINAL HAEMORRHAGE [None]
  - HAEMOGLOBIN DECREASED [None]
  - MALIGNANT NEOPLASM PROGRESSION [None]
  - RENAL FAILURE ACUTE [None]
  - TUBULOINTERSTITIAL NEPHRITIS [None]
